FAERS Safety Report 5415659-X (Version None)
Quarter: 2007Q3

REPORT INFORMATION
  Report Type: 
  Country: None (occurrence: None)
  Receive Date: 20070815
  Receipt Date: 20060606
  Transmission Date: 20080115
  Serious: Yes (Other)
  Sender: FDA-Public Use
  Company Number: US-BRISTOL-MYERS SQUIBB COMPANY-13402763

PATIENT
  Age: 74 Year
  Sex: Female
  Weight: 89 kg

DRUGS (17)
  1. TEQUIN [Suspect]
     Indication: COUGH
     Route: 048
     Dates: start: 20060508, end: 20060508
  2. TEQUIN [Suspect]
     Indication: RESPIRATORY TRACT INFECTION
     Route: 048
     Dates: start: 20060508, end: 20060508
  3. BUMEX [Concomitant]
  4. TOPROL-XL [Concomitant]
  5. PRILOSEC [Concomitant]
  6. SYNTHROID [Concomitant]
  7. DIOVAN HCT [Concomitant]
     Dosage: 160/125 MG TABLET
  8. AVANDIA [Concomitant]
  9. ALTACE [Concomitant]
  10. CLONIDINE [Concomitant]
  11. GLYNASE [Concomitant]
  12. VYTORIN [Concomitant]
  13. PHOSLO [Concomitant]
     Dosage: 657 MG TABLET
  14. ALLOPURINOL [Concomitant]
  15. LANTUS [Concomitant]
  16. PROCRIT [Concomitant]
  17. LOMOTIL [Concomitant]

REACTIONS (1)
  - HYPOGLYCAEMIA [None]
